FAERS Safety Report 16499544 (Version 1)
Quarter: 2019Q3

REPORT INFORMATION
  Report Type: Spontaneous
  Country: US (occurrence: US)
  Receive Date: 20190701
  Receipt Date: 20190701
  Transmission Date: 20191004
  Serious: Yes (Death, Other)
  Sender: FDA-Public Use
  Company Number: US-BIO PRODUCTS LABORATORY LTD-2070072

PATIENT
  Sex: Male

DRUGS (3)
  1. RITUXIMAB. [Concomitant]
     Active Substance: RITUXIMAB
  2. RANCICLOVIR [Concomitant]
  3. GENERIC IVIG [Suspect]
     Active Substance: HUMAN IMMUNOGLOBULIN G
     Indication: EPSTEIN-BARR VIRAEMIA

REACTIONS (4)
  - Multiple organ dysfunction syndrome [Fatal]
  - Off label use [Unknown]
  - Septic shock [Not Recovered/Not Resolved]
  - Therapeutic product effective for unapproved indication [Unknown]
